FAERS Safety Report 8298598-9 (Version None)
Quarter: 2012Q2

REPORT INFORMATION
  Report Type: 
  Country: None (occurrence: None)
  Receive Date: 20120417
  Receipt Date: 20120403
  Transmission Date: 20120825
  Serious: Yes (Other)
  Sender: FDA-Public Use
  Company Number: 2012MA004691

PATIENT
  Age: 24 Year
  Sex: Female

DRUGS (4)
  1. IRON [Concomitant]
  2. DOXYCYCLINE [Concomitant]
  3. IBUPROFEN [Concomitant]
  4. NAPROXEN [Suspect]
     Indication: ARTHRALGIA
     Dosage: 500 MG;PO
     Route: 048
     Dates: start: 20120310, end: 20120310

REACTIONS (6)
  - DIZZINESS [None]
  - HEADACHE [None]
  - VISION BLURRED [None]
  - PRURITUS [None]
  - RASH [None]
  - BLISTER [None]
